FAERS Safety Report 19514691 (Version 1)
Quarter: 2021Q3

REPORT INFORMATION
  Report Type: Spontaneous
  Country: CN (occurrence: CN)
  Receive Date: 20210709
  Receipt Date: 20210709
  Transmission Date: 20211014
  Serious: Yes (Other)
  Sender: FDA-Public Use
  Company Number: CN-ASTRAZENECA-2021A607943

PATIENT
  Age: 18333 Day
  Sex: Female
  Weight: 70 kg

DRUGS (3)
  1. ACETYLCYSTEINE. [Suspect]
     Active Substance: ACETYLCYSTEINE
     Indication: PNEUMONIA
     Route: 055
     Dates: start: 20210527, end: 20210603
  2. BUDESONIDE. [Suspect]
     Active Substance: BUDESONIDE
     Indication: PNEUMONIA
     Route: 055
     Dates: start: 20210527, end: 20210603
  3. TERBUTALINE [Suspect]
     Active Substance: TERBUTALINE
     Indication: PNEUMONIA
     Route: 055
     Dates: start: 20210527, end: 20210603

REACTIONS (2)
  - Productive cough [Recovering/Resolving]
  - Arteriospasm coronary [Recovering/Resolving]

NARRATIVE: CASE EVENT DATE: 20210603
